FAERS Safety Report 18557367 (Version 1)
Quarter: 2020Q4

REPORT INFORMATION
  Report Type: Spontaneous
  Country: TW (occurrence: TW)
  Receive Date: 20201129
  Receipt Date: 20201129
  Transmission Date: 20210114
  Serious: Yes (Hospitalization)
  Sender: FDA-Public Use
  Company Number: TW-ABBVIE-20K-153-3666399-00

PATIENT
  Age: 64 Year
  Sex: Male

DRUGS (6)
  1. PRIMPERAN [Concomitant]
     Active Substance: METOCLOPRAMIDE HYDROCHLORIDE
     Indication: PRODUCT USED FOR UNKNOWN INDICATION
     Dosage: 1TAB/ QDAC
     Route: 048
     Dates: start: 20201024, end: 20201102
  2. HUMIRA [Suspect]
     Active Substance: ADALIMUMAB
     Indication: ANKYLOSING SPONDYLITIS
     Route: 058
     Dates: start: 20141215
  3. NOVOMIX [Concomitant]
     Active Substance: INSULIN ASPART
     Indication: PRODUCT USED FOR UNKNOWN INDICATION
     Dosage: 16U/QDAC
     Route: 058
     Dates: start: 20201024, end: 20201109
  4. ULSTOP [Concomitant]
     Indication: PRODUCT USED FOR UNKNOWN INDICATION
     Route: 048
     Dates: start: 20201024, end: 20201102
  5. PLAQUENIL [Concomitant]
     Active Substance: HYDROXYCHLOROQUINE SULFATE
     Indication: PRODUCT USED FOR UNKNOWN INDICATION
     Route: 048
     Dates: start: 20201024, end: 20201102
  6. NOVOMIX [Concomitant]
     Active Substance: INSULIN ASPART
     Dosage: 12U/QPM
     Route: 058
     Dates: start: 20201024, end: 20201109

REACTIONS (8)
  - Fasciitis [Unknown]
  - Burning sensation [Unknown]
  - Anaemia [Unknown]
  - Urinary incontinence [Unknown]
  - Erythema [Unknown]
  - Prostatic abscess [Recovered/Resolved]
  - Pyrexia [Unknown]
  - Peripheral swelling [Unknown]

NARRATIVE: CASE EVENT DATE: 20201023
